FAERS Safety Report 22197519 (Version 2)
Quarter: 2023Q4

REPORT INFORMATION
  Report Type: Spontaneous
  Country: US (occurrence: US)
  Receive Date: 20230411
  Receipt Date: 20231014
  Transmission Date: 20240110
  Serious: Yes (Other)
  Sender: FDA-Public Use
  Company Number: US-TORRENT-00012601

PATIENT
  Age: 68 Year
  Sex: Female

DRUGS (6)
  1. ITRACONAZOLE [Suspect]
     Active Substance: ITRACONAZOLE
     Indication: Mycobacterium abscessus infection
     Dosage: UNKNOWN
     Route: 048
  2. AMIKACIN [Suspect]
     Active Substance: AMIKACIN
     Indication: Acid fast bacilli infection
     Dosage: UNKNOWN
     Route: 065
  3. AZITHROMYCIN [Suspect]
     Active Substance: AZITHROMYCIN
     Indication: Acid fast bacilli infection
     Dosage: UNKNOWN
     Route: 065
  4. CEFOXITIN [Suspect]
     Active Substance: CEFOXITIN SODIUM
     Indication: Mycobacterium abscessus infection
     Dosage: UNKNOWN
     Route: 065
  5. CLOFAZIMINE [Suspect]
     Active Substance: CLOFAZIMINE
     Indication: Acid fast bacilli infection
     Dosage: UNKNOWN
     Route: 065
  6. IMIPENEM [Suspect]
     Active Substance: IMIPENEM
     Indication: Aspergillus infection
     Dosage: UNKNOWN
     Route: 065

REACTIONS (1)
  - Laryngeal stenosis [Recovered/Resolved]
